FAERS Safety Report 21895469 (Version 1)
Quarter: 2023Q1

REPORT INFORMATION
  Report Type: Spontaneous
  Country: GB (occurrence: GB)
  Receive Date: 20230123
  Receipt Date: 20230123
  Transmission Date: 20230418
  Serious: Yes (Other)
  Sender: FDA-Public Use
  Company Number: GB-TEVA-2023-GB-2843539

PATIENT

DRUGS (1)
  1. SERTRALINE [Suspect]
     Active Substance: SERTRALINE HYDROCHLORIDE
     Indication: Product used for unknown indication
     Dosage: UNK
     Route: 065

REACTIONS (9)
  - Cerebral atrophy [Unknown]
  - Neurotransmitter level altered [Unknown]
  - Agitation [Unknown]
  - Obsessive-compulsive disorder [Unknown]
  - Obsessive-compulsive personality disorder [Unknown]
  - Anxiety [Unknown]
  - Sexual dysfunction [Not Recovered/Not Resolved]
  - Malaise [Unknown]
  - Adverse event [Unknown]
